FAERS Safety Report 10218570 (Version 5)
Quarter: 2016Q1

REPORT INFORMATION
  Report Type: Spontaneous
  Country: US (occurrence: US)
  Receive Date: 20140605
  Receipt Date: 20160104
  Transmission Date: 20160525
  Serious: Yes (Hospitalization, Other)
  Sender: FDA-Public Use
  Company Number: US-009507513-1406USA002204

PATIENT
  Sex: Female
  Weight: 59.41 kg

DRUGS (2)
  1. ALENDRONATE SODIUM. [Suspect]
     Active Substance: ALENDRONATE SODIUM
     Indication: PRODUCT USED FOR UNKNOWN INDICATION
     Route: 048
  2. FOSAMAX [Suspect]
     Active Substance: ALENDRONATE SODIUM
     Indication: OSTEOPOROSIS
     Dosage: 70 MG, QW
     Route: 048

REACTIONS (16)
  - Bursitis [Unknown]
  - Intramedullary rod insertion [Unknown]
  - Cerebrovascular accident [Unknown]
  - Low turnover osteopathy [Unknown]
  - Hypertension [Unknown]
  - Osteopenia [Not Recovered/Not Resolved]
  - Gallbladder disorder [Unknown]
  - Bone lesion [Unknown]
  - Arthropathy [Unknown]
  - Joint effusion [Unknown]
  - Osteopenia [Unknown]
  - Hypothyroidism [Unknown]
  - Arthropathy [Unknown]
  - Osteoporosis [Unknown]
  - Rheumatoid arthritis [Unknown]
  - Femur fracture [Recovered/Resolved]

NARRATIVE: CASE EVENT DATE: 20070108
